APPROVED DRUG PRODUCT: GARAMYCIN
Active Ingredient: GENTAMICIN SULFATE
Strength: EQ 0.3% BASE
Dosage Form/Route: OINTMENT;OPHTHALMIC
Application: N050425 | Product #001
Applicant: SCHERING CORP SUB SCHERING PLOUGH CORP
Approved: Approved Prior to Jan 1, 1982 | RLD: No | RS: No | Type: DISCN